FAERS Safety Report 5072199-8 (Version None)
Quarter: 2006Q3

REPORT INFORMATION
  Report Type: 
  Country: None (occurrence: None)
  Receive Date: 20060807
  Receipt Date: 20060623
  Transmission Date: 20061208
  Serious: Yes (Death, Hospitalization)
  Sender: FDA-Public Use
  Company Number: FR-BAYER-200610610BFR

PATIENT
  Age: 65 Year
  Sex: Male

DRUGS (13)
  1. SORAFENIB [Suspect]
     Indication: RENAL CELL CARCINOMA STAGE UNSPECIFIED
     Dosage: TOTAL DAILY DOSE: 800 MG  UNIT DOSE: 200 MG
     Route: 048
     Dates: start: 20060103, end: 20060504
  2. SORAFENIB [Suspect]
     Dosage: TOTAL DAILY DOSE: 800 MG  UNIT DOSE: 200 MG
     Route: 048
     Dates: start: 20060519, end: 20060614
  3. ACETAMINOPHEN [Concomitant]
     Indication: PAIN
     Route: 048
     Dates: start: 20051201
  4. IMODIUM [Concomitant]
     Indication: DIARRHOEA
     Route: 048
     Dates: start: 20060201, end: 20060301
  5. TIORFAN [Concomitant]
     Indication: DIARRHOEA
     Route: 048
     Dates: start: 20060301
  6. LOPERAMIDE [Concomitant]
     Indication: DIARRHOEA
     Route: 048
     Dates: start: 20060301
  7. CLAMOXYL [Concomitant]
     Indication: BRONCHITIS
     Route: 048
     Dates: start: 20060301, end: 20060301
  8. TOPALGIC [Concomitant]
     Indication: PAIN
     Route: 048
     Dates: start: 20060407
  9. RIVOTRIL [Concomitant]
     Indication: PAIN
     Route: 048
     Dates: start: 20060407
  10. PRIMPERAN TAB [Concomitant]
     Indication: VOMITING
     Route: 065
     Dates: start: 20060602
  11. HALDOL [Concomitant]
     Indication: VOMITING
     Route: 048
     Dates: start: 20060602
  12. NON STEROID ANTI-INFLAMMATORY [Concomitant]
     Indication: PAIN
     Route: 048
     Dates: start: 20060201
  13. CORTICOSTEROIDS [Concomitant]
     Indication: ASTHENIA
     Route: 048
     Dates: start: 20060602

REACTIONS (10)
  - ANOREXIA [None]
  - CARDIAC FAILURE [None]
  - CONFUSIONAL STATE [None]
  - DEHYDRATION [None]
  - GENERAL PHYSICAL HEALTH DETERIORATION [None]
  - MALIGNANT NEOPLASM PROGRESSION [None]
  - MENINGITIS [None]
  - METASTASES TO CENTRAL NERVOUS SYSTEM [None]
  - PULMONARY OEDEMA [None]
  - RENAL CELL CARCINOMA STAGE UNSPECIFIED [None]
